FAERS Safety Report 5407255-5 (Version None)
Quarter: 2007Q3

REPORT INFORMATION
  Report Type: 
  Country: None (occurrence: None)
  Receive Date: 20070807
  Receipt Date: 20070801
  Transmission Date: 20080115
  Serious: Yes (Other)
  Sender: FDA-Public Use
  Company Number: B0480293A

PATIENT
  Age: 43 Year
  Sex: Male

DRUGS (1)
  1. AROPAX [Suspect]
     Indication: DRUG USE FOR UNKNOWN INDICATION
     Route: 065
     Dates: end: 20070713

REACTIONS (8)
  - DISABILITY [None]
  - DIZZINESS [None]
  - DRUG WITHDRAWAL SYNDROME [None]
  - INSOMNIA [None]
  - MALAISE [None]
  - MOOD SWINGS [None]
  - UNEVALUABLE EVENT [None]
  - VERTIGO [None]
